FAERS Safety Report 21532133 (Version 1)
Quarter: 2022Q4

REPORT INFORMATION
  Report Type: Spontaneous
  Country: US (occurrence: US)
  Receive Date: 20221101
  Receipt Date: 20221101
  Transmission Date: 20230113
  Serious: No
  Sender: FDA-Public Use
  Company Number: US-JNJFOC-20221060536

PATIENT
  Age: 70 Year
  Sex: Female

DRUGS (5)
  1. TYLENOL [Suspect]
     Active Substance: ACETAMINOPHEN
     Indication: Headache
     Route: 065
     Dates: start: 2022
  2. TYVASO [Concomitant]
     Active Substance: TREPROSTINIL
     Indication: Pulmonary arterial hypertension
     Dosage: ROUTE OF ADMINISTRATION- INHALATION
     Route: 055
     Dates: start: 20220927
  3. TYVASO [Concomitant]
     Active Substance: TREPROSTINIL
     Dosage: ROUTE OF ADMINISTRATION- INHALATION, DOSE- 48 G, QID (16 G+ 32 G),
     Route: 055
     Dates: start: 2022
  4. TYVASO [Concomitant]
     Active Substance: TREPROSTINIL
     Dosage: ROUTE OF ADMINISTRATION- INHALATION, DOSE- 64 G, QID, INHALATION
     Route: 055
     Dates: start: 20221019
  5. TYVASO [Concomitant]
     Active Substance: TREPROSTINIL
     Dosage: ROUTE OF ADMINISTRATION- INHALATION, DOSE- 32 G, QID, INHALATION
     Route: 055
     Dates: start: 2022

REACTIONS (1)
  - Product use in unapproved indication [Unknown]

NARRATIVE: CASE EVENT DATE: 20220101
